FAERS Safety Report 18924295 (Version 1)
Quarter: 2021Q1

REPORT INFORMATION
  Report Type: Spontaneous
  Country: US (occurrence: US)
  Receive Date: 20210222
  Receipt Date: 20210222
  Transmission Date: 20210420
  Serious: Yes (Other)
  Sender: FDA-Public Use
  Company Number: US-ROCHE-2767453

PATIENT
  Sex: Male

DRUGS (2)
  1. OCREVUS [Suspect]
     Active Substance: OCRELIZUMAB
     Indication: MULTIPLE SCLEROSIS
     Route: 065
     Dates: start: 2017
  2. OCREVUS [Suspect]
     Active Substance: OCRELIZUMAB
     Dosage: LAST OCREVUS INFUSION
     Route: 065
     Dates: start: 20200803

REACTIONS (8)
  - Vision blurred [Unknown]
  - Fall [Unknown]
  - Multiple sclerosis relapse [Unknown]
  - Magnetic resonance imaging brain abnormal [Unknown]
  - Feeling cold [Unknown]
  - Hemiparesis [Unknown]
  - Bladder disorder [Unknown]
  - Cognitive disorder [Unknown]
